FAERS Safety Report 16169473 (Version 2)
Quarter: 2019Q2

REPORT INFORMATION
  Report Type: Spontaneous
  Country: FR (occurrence: FR)
  Receive Date: 20190408
  Receipt Date: 20190419
  Transmission Date: 20190711
  Serious: Yes (Other)
  Sender: FDA-Public Use
  Company Number: FR-JNJFOC-20190408864

PATIENT
  Sex: Male

DRUGS (1)
  1. XARELTO [Suspect]
     Active Substance: RIVAROXABAN
     Indication: DEEP VEIN THROMBOSIS
     Route: 048
     Dates: start: 201309, end: 20131005

REACTIONS (10)
  - Cognitive disorder [Unknown]
  - Disturbance in attention [Unknown]
  - Partial seizures [Unknown]
  - Quadriparesis [Unknown]
  - Haemorrhagic stroke [Unknown]
  - Subdural haematoma [Unknown]
  - Frontotemporal dementia [Unknown]
  - Cerebral amyloid angiopathy [Not Recovered/Not Resolved]
  - Executive dysfunction [Unknown]
  - Mutism [Unknown]

NARRATIVE: CASE EVENT DATE: 2013
